FAERS Safety Report 19934491 (Version 1)
Quarter: 2021Q4

REPORT INFORMATION
  Report Type: Spontaneous
  Country: US (occurrence: US)
  Receive Date: 20211008
  Receipt Date: 20211008
  Transmission Date: 20220303
  Serious: No
  Sender: FDA-Public Use
  Company Number: US-MYLANLABS-2021M1068040

PATIENT
  Sex: Female
  Weight: 66 kg

DRUGS (1)
  1. XULANE [Suspect]
     Active Substance: ETHINYL ESTRADIOL\NORELGESTROMIN
     Indication: Heavy menstrual bleeding
     Dosage: ONE PATCH A WEEK
     Route: 062

REACTIONS (2)
  - Product adhesion issue [Not Recovered/Not Resolved]
  - Off label use [Not Recovered/Not Resolved]
